FAERS Safety Report 6486788-7 (Version None)
Quarter: 2009Q4

REPORT INFORMATION
  Report Type: 
  Country: None (occurrence: None)
  Receive Date: 20091210
  Receipt Date: 20091130
  Transmission Date: 20100525
  Serious: Yes (Death, Hospitalization, Other)
  Sender: FDA-Public Use
  Company Number: ZA-SANOFI-AVENTIS-2009SA001220

PATIENT
  Age: 74 Year
  Sex: Female

DRUGS (6)
  1. LEFLUNOMIDE [Suspect]
     Indication: RHEUMATOID ARTHRITIS
     Dosage: 6X WEEKLY
     Route: 048
     Dates: start: 20090801
  2. AMOCLAV PLUS [Suspect]
     Route: 048
     Dates: start: 20091106, end: 20091108
  3. FLUCONAZOLE [Suspect]
     Route: 048
     Dates: start: 20091106, end: 20091106
  4. METHOTREXATE [Suspect]
     Indication: RHEUMATOID ARTHRITIS
     Route: 048
  5. PREDNISONE [Concomitant]
     Indication: RHEUMATOID ARTHRITIS
     Route: 048
  6. MELOXICAM [Concomitant]
     Indication: RHEUMATOID ARTHRITIS
     Route: 048

REACTIONS (7)
  - ATELECTASIS [None]
  - CEREBROVASCULAR ACCIDENT [None]
  - DIZZINESS [None]
  - DRUG INTERACTION [None]
  - LOSS OF CONSCIOUSNESS [None]
  - PNEUMONITIS [None]
  - RESPIRATORY DEPRESSION [None]
